FAERS Safety Report 25588343 (Version 1)
Quarter: 2025Q3

REPORT INFORMATION
  Report Type: Spontaneous
  Country: US (occurrence: US)
  Receive Date: 20250722
  Receipt Date: 20250722
  Transmission Date: 20251021
  Serious: No
  Sender: ENDO
  Company Number: US-ENDO USA, INC.-2024-003494

PATIENT
  Age: 57 Year
  Sex: Male

DRUGS (15)
  1. EDEX [Suspect]
     Active Substance: ALPROSTADIL
     Indication: Erectile dysfunction
     Route: 065
     Dates: start: 202409
  2. EDEX [Suspect]
     Active Substance: ALPROSTADIL
     Indication: Erectile dysfunction
     Route: 065
     Dates: start: 202409
  3. EDEX [Suspect]
     Active Substance: ALPROSTADIL
     Indication: Erectile dysfunction
     Route: 065
     Dates: start: 202409
  4. EDEX [Suspect]
     Active Substance: ALPROSTADIL
     Indication: Erectile dysfunction
     Route: 065
     Dates: start: 202409
  5. EDEX [Suspect]
     Active Substance: ALPROSTADIL
     Indication: Erectile dysfunction
     Route: 065
     Dates: start: 202409
  6. EDEX [Suspect]
     Active Substance: ALPROSTADIL
     Route: 065
     Dates: start: 2023
  7. EDEX [Suspect]
     Active Substance: ALPROSTADIL
     Route: 065
     Dates: start: 2023
  8. EDEX [Suspect]
     Active Substance: ALPROSTADIL
     Route: 065
     Dates: start: 2023
  9. EDEX [Suspect]
     Active Substance: ALPROSTADIL
     Route: 065
     Dates: start: 2023
  10. EDEX [Suspect]
     Active Substance: ALPROSTADIL
     Route: 065
     Dates: start: 2023
  11. EDEX [Suspect]
     Active Substance: ALPROSTADIL
     Route: 065
     Dates: start: 2021
  12. EDEX [Suspect]
     Active Substance: ALPROSTADIL
     Route: 065
     Dates: start: 2021
  13. EDEX [Suspect]
     Active Substance: ALPROSTADIL
     Route: 065
     Dates: start: 2021
  14. EDEX [Suspect]
     Active Substance: ALPROSTADIL
     Route: 065
     Dates: start: 2021
  15. EDEX [Suspect]
     Active Substance: ALPROSTADIL
     Route: 065
     Dates: start: 2021

REACTIONS (2)
  - Drug ineffective [Not Recovered/Not Resolved]
  - Suspected product quality issue [Unknown]

NARRATIVE: CASE EVENT DATE: 20240901
